FAERS Safety Report 15606004 (Version 1)
Quarter: 2018Q4

REPORT INFORMATION
  Report Type: Spontaneous
  Country: US (occurrence: US)
  Receive Date: 20181112
  Receipt Date: 20181112
  Transmission Date: 20190205
  Serious: No
  Sender: FDA-Public Use
  Company Number: US-AMGEN INC.-USASP2018156890

PATIENT
  Age: 49 Year
  Sex: Female

DRUGS (2)
  1. BOTOX [Concomitant]
     Active Substance: ONABOTULINUMTOXINA
     Indication: MIGRAINE
  2. AIMOVIG [Suspect]
     Active Substance: ERENUMAB-AOOE
     Indication: MIGRAINE PROPHYLAXIS
     Dosage: 140 MG, QMO
     Route: 065
     Dates: start: 201809

REACTIONS (7)
  - Pruritus [Unknown]
  - Rash [Unknown]
  - Intentional product misuse [Unknown]
  - Muscle spasms [Unknown]
  - Abdominal pain upper [Unknown]
  - Dysphonia [Unknown]
  - Urticaria [Unknown]

NARRATIVE: CASE EVENT DATE: 201810
